FAERS Safety Report 7869245-2 (Version None)
Quarter: 2011Q4

REPORT INFORMATION
  Report Type: 
  Country: None (occurrence: None)
  Receive Date: 20111026
  Receipt Date: 20111026
  Transmission Date: 20120403
  Serious: Yes (Hospitalization)
  Sender: FDA-Public Use
  Company Number: None

PATIENT
  Age: 72 Year
  Sex: Male
  Weight: 91.8 kg

DRUGS (1)
  1. DOXYCYCLINE [Suspect]
     Indication: LYMPHADENITIS
     Dosage: 100 MG BID PO
     Route: 048
     Dates: start: 20110924, end: 20110926

REACTIONS (8)
  - RASH MACULAR [None]
  - PARAESTHESIA ORAL [None]
  - CHEST DISCOMFORT [None]
  - DYSPEPSIA [None]
  - ABDOMINAL PAIN UPPER [None]
  - URTICARIA [None]
  - CHEST PAIN [None]
  - PRURITUS [None]
